FAERS Safety Report 24928157 (Version 1)
Quarter: 2025Q1

REPORT INFORMATION
  Report Type: Spontaneous
  Country: US (occurrence: None)
  Receive Date: 20250205
  Receipt Date: 20250205
  Transmission Date: 20250408
  Serious: Yes (Hospitalization)
  Sender: FDA-CTU
  Company Number: None

PATIENT
  Age: 60 Year
  Sex: Female

DRUGS (2)
  1. ARANESP [Suspect]
     Active Substance: DARBEPOETIN ALFA
     Indication: Iron deficiency anaemia
     Route: 058
     Dates: start: 202408
  2. GATTEX [Concomitant]
     Active Substance: TEDUGLUTIDE\WATER

REACTIONS (2)
  - Pneumonia [None]
  - Pleural effusion [None]

NARRATIVE: CASE EVENT DATE: 20241211
